FAERS Safety Report 17251436 (Version 1)
Quarter: 2020Q1

REPORT INFORMATION
  Report Type: Spontaneous
  Country: TR (occurrence: TR)
  Receive Date: 20200109
  Receipt Date: 20200109
  Transmission Date: 20200409
  Serious: Yes (Death, Other)
  Sender: FDA-Public Use
  Company Number: NVSC2020TR002962

PATIENT
  Age: 56 Year
  Sex: Male

DRUGS (3)
  1. LEVODOPA [Suspect]
     Active Substance: LEVODOPA
     Dosage: 1000 MG, QD
     Route: 065
  2. AMANTADINE. [Suspect]
     Active Substance: AMANTADINE HYDROCHLORIDE
     Indication: PARKINSONISM
     Dosage: 300 MG, QD
     Route: 065
  3. LEVODOPA [Suspect]
     Active Substance: LEVODOPA
     Indication: PARKINSONISM
     Dosage: 465 MG, QD
     Route: 065

REACTIONS (2)
  - Neuroleptic malignant syndrome [Fatal]
  - Respiratory distress [Fatal]
